FAERS Safety Report 9803088 (Version 1)
Quarter: 2014Q1

REPORT INFORMATION
  Report Type: Spontaneous
  Country: US (occurrence: None)
  Receive Date: 20140106
  Receipt Date: 20140106
  Transmission Date: 20141002
  Serious: Yes (Other)
  Sender: FDA-Public Use
  Company Number: None

PATIENT
  Age: 88 Year
  Sex: Male

DRUGS (16)
  1. ZYTIGA [Suspect]
     Route: 048
     Dates: start: 20130830
  2. GLIPISIDE [Concomitant]
  3. LEVOTHYROXINE [Concomitant]
  4. VITB12 [Concomitant]
  5. FOLIC ACID [Concomitant]
  6. VITD3 [Concomitant]
  7. TAMSULOSIN [Concomitant]
  8. PLAVIX [Concomitant]
  9. COUMADIN [Concomitant]
  10. CREON [Concomitant]
  11. CHLOR TAB [Concomitant]
  12. CALCIUM [Concomitant]
  13. CINNAMON [Concomitant]
  14. POTASSIUM [Concomitant]
  15. XGEVA [Concomitant]
  16. PREDNISONE [Concomitant]

REACTIONS (2)
  - Urinary tract infection [None]
  - Malignant neoplasm progression [None]
